FAERS Safety Report 8116167-8 (Version None)
Quarter: 2012Q1

REPORT INFORMATION
  Report Type: 
  Country: None (occurrence: None)
  Receive Date: 20120206
  Receipt Date: 20120201
  Transmission Date: 20120608
  Serious: Yes (Other)
  Sender: FDA-Public Use
  Company Number: DK-PFIZER INC-2012015056

PATIENT
  Age: 61 Year
  Sex: Female
  Weight: 72 kg

DRUGS (1)
  1. VARENICLINE TARTRATE [Suspect]
     Indication: SMOKING CESSATION THERAPY
     Dosage: 0.5MG AND 1MG
     Route: 048
     Dates: start: 20111214, end: 20111201

REACTIONS (5)
  - SWELLING FACE [None]
  - SKIN EXFOLIATION [None]
  - SKIN ULCER [None]
  - DEPRESSION [None]
  - NAUSEA [None]
